FAERS Safety Report 16407035 (Version 2)
Quarter: 2019Q2

REPORT INFORMATION
  Report Type: Spontaneous
  Country: US (occurrence: US)
  Receive Date: 20190608
  Receipt Date: 20190609
  Transmission Date: 20190711
  Serious: Yes (Hospitalization)
  Sender: FDA-Public Use
  Company Number: US-JNJFOC-20190413707

PATIENT
  Age: 36 Year
  Sex: Female
  Weight: 68.04 kg

DRUGS (3)
  1. NEOSPORIN [Suspect]
     Active Substance: BACITRACIN ZINC\NEOMYCIN SULFATE\POLYMYXIN B SULFATE
     Indication: SCRATCH
     Dosage: SAME DAB APPLIED ONCE
     Route: 061
     Dates: start: 20190412, end: 20190412
  2. NEOSPORIN [Suspect]
     Active Substance: BACITRACIN ZINC\NEOMYCIN SULFATE\POLYMYXIN B SULFATE
     Indication: THERMAL BURN
     Dosage: SAME DAB APPLIED ONCE
     Route: 061
     Dates: start: 20190412, end: 20190412
  3. NEOSPORIN [Suspect]
     Active Substance: BACITRACIN ZINC\NEOMYCIN SULFATE\POLYMYXIN B SULFATE
     Indication: SKIN LACERATION
     Dosage: SAME DAB APPLIED ONCE
     Route: 061
     Dates: start: 20190412, end: 20190412

REACTIONS (3)
  - Application site pruritus [Recovered/Resolved]
  - Urticaria [Recovered/Resolved]
  - Application site rash [Recovered/Resolved]

NARRATIVE: CASE EVENT DATE: 20190412
